FAERS Safety Report 20730782 (Version 1)
Quarter: 2022Q2

REPORT INFORMATION
  Report Type: Spontaneous
  Country: US (occurrence: US)
  Receive Date: 20220420
  Receipt Date: 20220420
  Transmission Date: 20220721
  Serious: No
  Sender: FDA-Public Use
  Company Number: US-ASTELLAS-2021US017217

PATIENT
  Age: 74 Year
  Sex: Female

DRUGS (4)
  1. LEXISCAN [Suspect]
     Active Substance: REGADENOSON
     Indication: Product used for unknown indication
     Dosage: 0.08 MG/ML, UNKNOWN FREQ.
     Route: 042
     Dates: start: 20210507, end: 20210507
  2. LEXISCAN [Suspect]
     Active Substance: REGADENOSON
     Indication: Product used for unknown indication
     Dosage: 0.08 MG/ML, UNKNOWN FREQ.
     Route: 042
     Dates: start: 20210507, end: 20210507
  3. LEXISCAN [Suspect]
     Active Substance: REGADENOSON
     Indication: Product used for unknown indication
     Dosage: 0.08 MG/ML, UNKNOWN FREQ.
     Route: 042
     Dates: start: 20210507, end: 20210507
  4. LEXISCAN [Suspect]
     Active Substance: REGADENOSON
     Indication: Product used for unknown indication
     Dosage: 0.08 MG/ML, UNKNOWN FREQ.
     Route: 042
     Dates: start: 20210507, end: 20210507

REACTIONS (4)
  - Injection site extravasation [Unknown]
  - Erythema [Unknown]
  - Injection site discomfort [Unknown]
  - Injection site pain [Unknown]

NARRATIVE: CASE EVENT DATE: 20210507
